FAERS Safety Report 15770054 (Version 1)
Quarter: 2018Q4

REPORT INFORMATION
  Report Type: Spontaneous
  Country: US (occurrence: US)
  Receive Date: 20181224
  Receipt Date: 20181224
  Transmission Date: 20190205
  Serious: No
  Sender: FDA-Public Use
  Company Number: None

PATIENT

DRUGS (2)
  1. PANTOPRAZOLE SODIUM PANTOPRAZOLE [Suspect]
     Active Substance: PANTOPRAZOLE SODIUM
     Dosage: SINGLE DOSE VAL
     Route: 042
  2. ETOMIDATE ETOMIDATE [Suspect]
     Active Substance: ETOMIDATE
     Dosage: SINGLE DOSE VAL 10ML
     Route: 042

REACTIONS (3)
  - Product appearance confusion [None]
  - Product size issue [None]
  - Product colour issue [None]
